FAERS Safety Report 8396261-7 (Version None)
Quarter: 2012Q2

REPORT INFORMATION
  Report Type: 
  Country: None (occurrence: None)
  Receive Date: 20120530
  Receipt Date: 20120521
  Transmission Date: 20120825
  Serious: Yes (Other)
  Sender: FDA-Public Use
  Company Number: FR-BRISTOL-MYERS SQUIBB COMPANY-16503591

PATIENT
  Age: 63 Year
  Sex: Female
  Weight: 50 kg

DRUGS (4)
  1. REYATAZ [Suspect]
     Dates: start: 20060101, end: 20120401
  2. NORVIR [Suspect]
  3. EPIVIR [Concomitant]
     Route: 048
     Dates: start: 19960101
  4. VIDEX [Suspect]
     Route: 048
     Dates: start: 20041001

REACTIONS (2)
  - NEPHROLITHIASIS [None]
  - CHOLELITHIASIS [None]
